FAERS Safety Report 4314978-8 (Version None)
Quarter: 2004Q1

REPORT INFORMATION
  Report Type: 
  Country: None (occurrence: None)
  Receive Date: 20040309
  Receipt Date: 20040225
  Transmission Date: 20041129
  Serious: Yes (Other)
  Sender: FDA-Public Use
  Company Number: FR_040203536

PATIENT
  Age: 70 Year
  Sex: Female

DRUGS (7)
  1. RALOXIFENE HCL [Suspect]
     Indication: OSTEOPOROSIS
     Dosage: 60 MG/DAY
     Dates: start: 20031120, end: 20031210
  2. LEVOTHYROXINE SODIUM [Concomitant]
  3. FONZYLANE (BUFLOMEDIL HYDROCHLORIDE) [Concomitant]
  4. PRAVASTATIN SODIUM [Concomitant]
  5. OGAST (LANSOPRAZOLE) [Concomitant]
  6. DEPAKENE [Concomitant]
  7. ASPEGIC 1000 [Concomitant]

REACTIONS (7)
  - ACUTE PULMONARY OEDEMA [None]
  - CARDIAC FAILURE [None]
  - CREPITATIONS [None]
  - DYSPNOEA [None]
  - HYPERTENSION [None]
  - OEDEMA PERIPHERAL [None]
  - SKIN INDURATION [None]
